FAERS Safety Report 8255970-0 (Version None)
Quarter: 2012Q1

REPORT INFORMATION
  Report Type: 
  Country: None (occurrence: None)
  Receive Date: 20120330
  Receipt Date: 20120322
  Transmission Date: 20120608
  Serious: Yes (Other)
  Sender: FDA-Public Use
  Company Number: DKLU1075060

PATIENT
  Age: 8 Month
  Sex: Female

DRUGS (1)
  1. SABRIL [Suspect]
     Indication: EPILEPSY
     Dosage: 100 MG/KG MILLIGRAM(S) /KILOGRAM, 1 IN 1 D, ORAL
     Route: 048

REACTIONS (8)
  - CONDITION AGGRAVATED [None]
  - FEEDING DISORDER NEONATAL [None]
  - GENERAL PHYSICAL HEALTH DETERIORATION [None]
  - INAPPROPRIATE AFFECT [None]
  - MYOCLONUS [None]
  - HYPOTONIA [None]
  - MUSCLE SPASMS [None]
  - ELECTROENCEPHALOGRAM ABNORMAL [None]
